FAERS Safety Report 7967196-6 (Version None)
Quarter: 2011Q4

REPORT INFORMATION
  Report Type: 
  Country: None (occurrence: None)
  Receive Date: 20111209
  Receipt Date: 20111202
  Transmission Date: 20120403
  Serious: No
  Sender: FDA-Public Use
  Company Number: US-PFIZER INC-2011296011

PATIENT
  Sex: Male

DRUGS (1)
  1. PROCARDIA [Suspect]
     Dosage: 30 MG, 2X/DAY

REACTIONS (2)
  - FEELING ABNORMAL [None]
  - HYPOTENSION [None]
